FAERS Safety Report 7754209-X (Version None)
Quarter: 2011Q3

REPORT INFORMATION
  Report Type: 
  Country: None (occurrence: None)
  Receive Date: 20110915
  Receipt Date: 20110906
  Transmission Date: 20111222
  Serious: Yes (Other)
  Sender: FDA-Public Use
  Company Number: US-ASTRAZENECA-2011SE53628

PATIENT

DRUGS (13)
  1. ALBUTEROL [Concomitant]
  2. O2 [Concomitant]
     Dosage: 2L/NC HS
  3. LISINOPRIL [Suspect]
     Route: 048
     Dates: start: 20090422
  4. ATROVENT [Concomitant]
  5. VERPAMIL HCL [Concomitant]
  6. VIT D [Concomitant]
  7. FOLBEE [Concomitant]
     Dosage: AM
  8. VERPAMIL HCL [Concomitant]
  9. PRAVASTATIN [Concomitant]
  10. NEURONTIN [Concomitant]
     Dosage: 300 TID
     Dates: start: 20090401
  11. MUCINEX [Concomitant]
     Dosage: DAILY PRN
  12. LEVOTHYROXINE SODIUM [Concomitant]
  13. VENDAL [Concomitant]
     Dosage: PRN

REACTIONS (10)
  - HYPERTENSION [None]
  - LIPIDS INCREASED [None]
  - CARDIAC DISCOMFORT [None]
  - NEUROPATHY PERIPHERAL [None]
  - CHRONIC OBSTRUCTIVE PULMONARY DISEASE [None]
  - AUTOIMMUNE THYROIDITIS [None]
  - DIABETIC NEUROPATHY [None]
  - MYOCARDIAL INFARCTION [None]
  - CORONARY ARTERY DISEASE [None]
  - EMPHYSEMA [None]
